FAERS Safety Report 7247383-5 (Version None)
Quarter: 2011Q1

REPORT INFORMATION
  Report Type: 
  Country: None (occurrence: None)
  Receive Date: 20110127
  Receipt Date: 20110117
  Transmission Date: 20110831
  Serious: Yes (Hospitalization)
  Sender: FDA-Public Use
  Company Number: PHHY2011BR04044

PATIENT
  Sex: Female
  Weight: 48 kg

DRUGS (5)
  1. ACLASTA [Suspect]
     Dosage: 5MG/ 100 ML, 1 ANNUAL APPLICATION
     Route: 042
     Dates: start: 20091220
  2. ACLASTA [Suspect]
     Indication: OSTEOPOROSIS
     Dosage: 5MG/ 100 ML, 1 ANNUAL APPLICATION
     Route: 042
     Dates: start: 20070801
  3. ACLASTA [Suspect]
     Dosage: 5MG/ 100 ML, 1 ANNUAL APPLICATION
     Route: 042
     Dates: start: 20081220
  4. ACLASTA [Suspect]
     Dosage: 5MG/ 100 ML, 1 ANNUAL APPLICATION
     Route: 042
     Dates: start: 20101220
  5. CARDIZEM [Concomitant]
     Indication: CARDIAC DISORDER
     Dosage: 1 DF, BID
     Route: 048
     Dates: start: 20080201

REACTIONS (2)
  - ACUTE MYOCARDIAL INFARCTION [None]
  - CARDIAC DISORDER [None]
